FAERS Safety Report 5863275-8 (Version None)
Quarter: 2008Q3

REPORT INFORMATION
  Report Type: 
  Country: None (occurrence: None)
  Receive Date: 20080828
  Receipt Date: 20080819
  Transmission Date: 20090109
  Serious: Yes (Hospitalization)
  Sender: FDA-Public Use
  Company Number: GB-PFIZER INC-2008069812

PATIENT
  Age: 25 Year
  Sex: Female

DRUGS (4)
  1. PHENYTOIN [Suspect]
     Indication: GRAND MAL CONVULSION
     Route: 048
     Dates: start: 20080803, end: 20080807
  2. TEGRETOL [Interacting]
  3. LAMOTRIGINE [Interacting]
  4. ZONISAMIDE [Interacting]

REACTIONS (2)
  - CONVULSION [None]
  - DRUG INTERACTION [None]
